FAERS Safety Report 6431550-4 (Version None)
Quarter: 2009Q4

REPORT INFORMATION
  Report Type: 
  Country: None (occurrence: None)
  Receive Date: 20091106
  Receipt Date: 20091102
  Transmission Date: 20100525
  Serious: Yes (Other)
  Sender: FDA-Public Use
  Company Number: LB-ELI_LILLY_AND_COMPANY-LB200911000457

PATIENT
  Age: 58 Year
  Sex: Male

DRUGS (7)
  1. HUMULIN 70/30 [Suspect]
     Indication: DIABETES MELLITUS
     Dosage: UNK, UNKNOWN
     Route: 065
     Dates: end: 20091010
  2. HUMALOG [Suspect]
     Indication: DIABETES MELLITUS
     Dosage: 12 U, 3/D
     Route: 058
     Dates: start: 20091011, end: 20091015
  3. MICARDIS [Concomitant]
     Indication: HYPERTENSION
     Dosage: 80 MG, DAILY (1/D)
     Route: 065
  4. CONCOR [Concomitant]
     Indication: HYPERTENSION
     Dosage: 2.5 MG, DAILY (1/D)
     Route: 065
  5. MAGNE-B6 [Concomitant]
     Indication: VITAMIN SUPPLEMENTATION
     Dosage: 3 D/F, DAILY (1/D)
     Route: 065
  6. ZOCOR [Concomitant]
     Indication: HYPOLIPIDAEMIA
     Dosage: 10 MG, DAILY (1/D)
     Route: 065
  7. LANTUS [Concomitant]
     Indication: DIABETES MELLITUS
     Dosage: UNK, UNKNOWN
     Route: 065

REACTIONS (3)
  - BLOOD GLUCOSE INCREASED [None]
  - RASH [None]
  - TACHYCARDIA [None]
